FAERS Safety Report 15929664 (Version 1)
Quarter: 2019Q1

REPORT INFORMATION
  Report Type: Spontaneous
  Country: DK (occurrence: DK)
  Receive Date: 20190206
  Receipt Date: 20190206
  Transmission Date: 20190417
  Serious: Yes (Hospitalization)
  Sender: FDA-Public Use
  Company Number: DK-PFIZER INC-2019048382

PATIENT
  Age: 37 Year
  Sex: Female
  Weight: 97 kg

DRUGS (3)
  1. DOSTINEX [Suspect]
     Active Substance: CABERGOLINE
     Indication: BREAST FEEDING
     Dosage: 0.5 MG, 1X/DAY
     Route: 048
     Dates: start: 20181221, end: 20181223
  2. METRONIDAZOLE. [Concomitant]
     Active Substance: METRONIDAZOLE
     Indication: INFECTION
     Dosage: 1500 MG, 1X/DAY
     Route: 048
     Dates: start: 20181221, end: 20181230
  3. AMOXICILLIN HYDRATE [Concomitant]
     Active Substance: AMOXICILLIN
     Indication: URINARY TRACT INFECTION
     Dosage: 2250 MG, 1X/DAY
     Route: 048
     Dates: start: 20181221, end: 20181230

REACTIONS (2)
  - Dyspnoea [Recovered/Resolved]
  - Pulmonary embolism [Unknown]

NARRATIVE: CASE EVENT DATE: 20181221
